FAERS Safety Report 10518640 (Version 3)
Quarter: 2014Q4

REPORT INFORMATION
  Report Type: Spontaneous
  Country: AR (occurrence: AR)
  Receive Date: 20141015
  Receipt Date: 20141201
  Transmission Date: 20150528
  Serious: Yes (Death, Other)
  Sender: FDA-Public Use
  Company Number: AR-AMGEN-ARGSP2014079433

PATIENT
  Age: 11 Year
  Sex: Female

DRUGS (4)
  1. METHOTREXATE [Concomitant]
     Active Substance: METHOTREXATE
     Dosage: 15 MG, WEEKLY
  2. ENBREL [Suspect]
     Active Substance: ETANERCEPT
     Indication: PRODUCT USED FOR UNKNOWN INDICATION
     Dosage: 50 MG, QWK
     Route: 065
     Dates: start: 201403
  3. MEPREDNISONE [Concomitant]
     Active Substance: MEPREDNISONE
     Dosage: 20 MG, 1X/DAY
  4. FOLIC ACID. [Concomitant]
     Active Substance: FOLIC ACID
     Dosage: 5 MG, WEEKLY

REACTIONS (6)
  - Pulmonary alveolar haemorrhage [Unknown]
  - Dyspnoea [Unknown]
  - Pulmonary embolism [Unknown]
  - Acute myocardial infarction [Unknown]
  - Haemoptysis [Unknown]
  - Cardio-respiratory arrest [Fatal]

NARRATIVE: CASE EVENT DATE: 201409
